FAERS Safety Report 5857417-8 (Version None)
Quarter: 2008Q3

REPORT INFORMATION
  Report Type: 
  Country: None (occurrence: None)
  Receive Date: 20080818
  Receipt Date: 20080422
  Transmission Date: 20090109
  Serious: No
  Sender: FDA-Public Use
  Company Number: TPA2008A00307

PATIENT
  Age: 64 Year
  Sex: Female
  Weight: 45.3597 kg

DRUGS (4)
  1. ROZEREM [Suspect]
     Indication: INSOMNIA
     Dosage: 8 MG, HS, PER ORAL
     Route: 049
     Dates: start: 20080305, end: 20080307
  2. PREDNISONE [Concomitant]
  3. FLORINEF [Concomitant]
  4. SYNTHROID [Concomitant]

REACTIONS (4)
  - HALLUCINATION, VISUAL [None]
  - OEDEMA PERIPHERAL [None]
  - POOR QUALITY SLEEP [None]
  - SLEEP TALKING [None]
